FAERS Safety Report 14740261 (Version 1)
Quarter: 2018Q2

REPORT INFORMATION
  Report Type: Spontaneous
  Country: US (occurrence: US)
  Receive Date: 20180404
  Receipt Date: 20180404
  Transmission Date: 20180711
  Serious: Yes (Hospitalization)
  Sender: FDA-Public Use
  Company Number: None

PATIENT
  Age: 85 Year
  Sex: Female
  Weight: 67.2 kg

DRUGS (2)
  1. TRAJENTA [Concomitant]
     Active Substance: LINAGLIPTIN
  2. MEMANTINE HYDROCHLORIDE. [Suspect]
     Active Substance: MEMANTINE HYDROCHLORIDE
     Dates: end: 20180221

REACTIONS (10)
  - Abdominal pain [None]
  - Constipation [None]
  - Hypophagia [None]
  - Urine leukocyte esterase positive [None]
  - Disease progression [None]
  - Vomiting [None]
  - Dysphagia [None]
  - Metastatic neoplasm [None]
  - Liver function test increased [None]
  - Metastases to bone [None]

NARRATIVE: CASE EVENT DATE: 20180308
